FAERS Safety Report 16255684 (Version 1)
Quarter: 2019Q2

REPORT INFORMATION
  Report Type: Spontaneous
  Country: CA (occurrence: CA)
  Receive Date: 20190430
  Receipt Date: 20190430
  Transmission Date: 20190711
  Serious: Yes (Hospitalization)
  Sender: FDA-Public Use
  Company Number: CA-BAYER-2019-085675

PATIENT
  Age: 64 Year
  Sex: Female

DRUGS (49)
  1. CLARITIN [Suspect]
     Active Substance: LORATADINE
     Dosage: UNK
  2. FOSAMAX [Suspect]
     Active Substance: ALENDRONATE SODIUM
     Dosage: UNK
  3. IMODIUM [Suspect]
     Active Substance: LOPERAMIDE HYDROCHLORIDE
  4. MYCOPHENOLATE MOFETIL. [Suspect]
     Active Substance: MYCOPHENOLATE MOFETIL
  5. POTASSIUM CHLORIDE. [Suspect]
     Active Substance: POTASSIUM CHLORIDE
     Dosage: 60 MG
  6. SULFAMETHOXAZOLE AND TRIMETHOPRIM [Suspect]
     Active Substance: SULFAMETHOXAZOLE\TRIMETHOPRIM
     Dosage: 3 MG, QD
     Route: 048
  7. CYANOCOBALAMIN. [Suspect]
     Active Substance: CYANOCOBALAMIN
  8. ERGOCALCIFEROL. [Suspect]
     Active Substance: ERGOCALCIFEROL
  9. IMODIUM [Suspect]
     Active Substance: LOPERAMIDE HYDROCHLORIDE
     Dosage: UNK
     Route: 042
  10. MOMETASONE FUROATE. [Suspect]
     Active Substance: MOMETASONE FUROATE
  11. NORTRIPTYLINE [Suspect]
     Active Substance: NORTRIPTYLINE
     Dosage: UNK
     Route: 048
  12. POTASSIUM CHLORIDE. [Suspect]
     Active Substance: POTASSIUM CHLORIDE
     Dosage: 600 MG
     Route: 042
  13. SULFAMETHOXAZOLE AND TRIMETHOPRIM [Suspect]
     Active Substance: SULFAMETHOXAZOLE\TRIMETHOPRIM
     Dosage: 60 MG
     Route: 048
  14. BACLOFEN. [Suspect]
     Active Substance: BACLOFEN
     Route: 048
  15. CALCIUM CARBONATE. [Suspect]
     Active Substance: CALCIUM CARBONATE
  16. CYMBALTA [Suspect]
     Active Substance: DULOXETINE HYDROCHLORIDE
     Indication: PAIN
     Dosage: 3 MG, QD
     Route: 048
  17. CYMBALTA [Suspect]
     Active Substance: DULOXETINE HYDROCHLORIDE
     Indication: PAIN
     Dosage: 1 DF
     Route: 048
  18. FUROSEMIDE. [Suspect]
     Active Substance: FUROSEMIDE
  19. NOVO-HYDRAZIDE [Suspect]
     Active Substance: HYDROCHLOROTHIAZIDE
     Dosage: UNK
     Route: 048
  20. SALMON OIL [Suspect]
     Active Substance: FISH OIL
  21. SENOKOT [Suspect]
     Active Substance: SENNOSIDES
     Dosage: UNK
  22. ZANTAC [Suspect]
     Active Substance: RANITIDINE HYDROCHLORIDE
  23. ZOPICLONE [Suspect]
     Active Substance: ZOPICLONE
     Dosage: UNK
     Route: 048
  24. CALCIUM [Suspect]
     Active Substance: CALCIUM
  25. LYRICA [Suspect]
     Active Substance: PREGABALIN
     Dosage: UNK
  26. SULFAMETHOXAZOLE AND TRIMETHOPRIM [Suspect]
     Active Substance: SULFAMETHOXAZOLE\TRIMETHOPRIM
     Dosage: UNK
     Route: 042
  27. WARFARIN [Suspect]
     Active Substance: WARFARIN
  28. LORATADIN [Suspect]
     Active Substance: LORATADINE
     Dosage: 600 MG
     Route: 042
  29. DULOXETINE HYDROCHLORIDE. [Suspect]
     Active Substance: DULOXETINE HYDROCHLORIDE
     Dosage: 3 MG, QD
     Route: 048
  30. FISH OIL [Suspect]
     Active Substance: FISH OIL
     Dosage: UNK
     Route: 048
  31. HYDROMORPHONE [Suspect]
     Active Substance: HYDROMORPHONE
  32. PREDNISONE. [Suspect]
     Active Substance: PREDNISONE
  33. RANITIDINE. [Suspect]
     Active Substance: RANITIDINE
  34. RETINOL [Suspect]
     Active Substance: RETINOL
     Dosage: 600 MILLEQUIVALENTS
  35. VITAMIN B COMPLEX [Suspect]
     Active Substance: CYANOCOBALAMIN\DEXPANTHENOL\NIACINAMIDE\PYRIDOXINE HYDROCHLORIDE\RIBOFLAVIN 5^-PHOSPHATE SODIUM\THIAMINE HYDROCHLORIDE\VITAMIN B COMPLEX
  36. CLARITIN [Suspect]
     Active Substance: LORATADINE
  37. ANTITHYMOCYTE IMMUNOGLOBULIN [Suspect]
     Active Substance: THYMOCYTE IMMUNE GLOBULIN NOS
     Dosage: UNK
  38. ASCORBIC ACID. [Suspect]
     Active Substance: ASCORBIC ACID
     Dosage: UNK
  39. ATIVAN [Suspect]
     Active Substance: LORAZEPAM
  40. DULOXETINE HYDROCHLORIDE. [Suspect]
     Active Substance: DULOXETINE HYDROCHLORIDE
     Dosage: 1 DF
     Route: 048
  41. MELATONIN [Suspect]
     Active Substance: MELATONIN
  42. TIZANIDINE. [Suspect]
     Active Substance: TIZANIDINE
     Dosage: UNK
     Route: 048
  43. ACIDOPHYLUS PEARLS [Suspect]
     Active Substance: BIFIDOBACTERIUM LONGUM\LACTOBACILLUS ACIDOPHILUS
     Route: 048
  44. ALENDRONATE SODIUM. [Suspect]
     Active Substance: ALENDRONATE SODIUM
  45. CYANOCOBALAMIN. [Suspect]
     Active Substance: CYANOCOBALAMIN
  46. D-ALPHA TOCOPHEROL [Suspect]
     Active Substance: .ALPHA.-TOCOPHEROL, D-
  47. DOCUSATE SODIUM. [Suspect]
     Active Substance: DOCUSATE SODIUM
  48. FOLIC ACID. [Suspect]
     Active Substance: FOLIC ACID
     Route: 048
  49. RETINOL [Suspect]
     Active Substance: RETINOL
     Dosage: 3 MG, QD
     Route: 048

REACTIONS (4)
  - Somnolence [Recovered/Resolved]
  - Coma [Recovered/Resolved]
  - Gastrooesophageal reflux disease [Recovered/Resolved]
  - Pneumonia aspiration [Recovered/Resolved]
